FAERS Safety Report 19099799 (Version 2)
Quarter: 2021Q3

REPORT INFORMATION
  Report Type: Spontaneous
  Country: US (occurrence: US)
  Receive Date: 20210407
  Receipt Date: 20210813
  Transmission Date: 20211014
  Serious: Yes (Hospitalization, Other)
  Sender: FDA-Public Use
  Company Number: US-HIKMA PHARMACEUTICALS USA INC.-US-H14001-21-01561

PATIENT
  Age: 16 Year
  Sex: Male
  Weight: 78.1 kg

DRUGS (8)
  1. METHOTREXATE. [Suspect]
     Active Substance: METHOTREXATE
     Indication: PHILADELPHIA POSITIVE ACUTE LYMPHOCYTIC LEUKAEMIA
     Route: 037
     Dates: start: 20201120
  2. RUXOLITINIB [Suspect]
     Active Substance: RUXOLITINIB
     Indication: PHILADELPHIA POSITIVE ACUTE LYMPHOCYTIC LEUKAEMIA
     Route: 048
     Dates: start: 20201121, end: 20201207
  3. PEGASPARGASE [Suspect]
     Active Substance: PEGASPARGASE
     Indication: PHILADELPHIA POSITIVE ACUTE LYMPHOCYTIC LEUKAEMIA
     Route: 042
     Dates: start: 20201207, end: 20210111
  4. METHOTREXATE. [Suspect]
     Active Substance: METHOTREXATE
     Indication: PHILADELPHIA POSITIVE ACUTE LYMPHOCYTIC LEUKAEMIA
     Route: 065
     Dates: start: 20201120
  5. CYCLOPHOSPHAMIDE. [Suspect]
     Active Substance: CYCLOPHOSPHAMIDE
     Indication: PHILADELPHIA POSITIVE ACUTE LYMPHOCYTIC LEUKAEMIA
     Dosage: (28 DAYS OF COURSE 1?14 AND 29?42)
     Route: 042
     Dates: start: 20201121, end: 20201228
  6. CYTARABINE. [Suspect]
     Active Substance: CYTARABINE
     Indication: PHILADELPHIA POSITIVE ACUTE LYMPHOCYTIC LEUKAEMIA
     Dosage: 16 DAYS OF COURSE 1?4, 8?11, 29?32 AND 36?39
     Route: 042
     Dates: start: 20201120, end: 20210108
  7. VINCRISTINE [Suspect]
     Active Substance: VINCRISTINE
     Indication: PHILADELPHIA POSITIVE ACUTE LYMPHOCYTIC LEUKAEMIA
     Dosage: 4 DAYS OF COURSE 15,22,43,50
     Route: 042
     Dates: start: 20201207, end: 20210119
  8. MERCAPTOPURINE. [Suspect]
     Active Substance: MERCAPTOPURINE
     Indication: PHILADELPHIA POSITIVE ACUTE LYMPHOCYTIC LEUKAEMIA
     Dosage: 28 DAYS OF COURSE 1?14 AND 29?42
     Route: 048
     Dates: start: 20201121

REACTIONS (17)
  - Pyrexia [Recovered/Resolved]
  - Breath sounds abnormal [Unknown]
  - Condition aggravated [Not Recovered/Not Resolved]
  - Abdominal tenderness [Unknown]
  - White blood cell count decreased [Unknown]
  - Decreased appetite [Unknown]
  - Neutrophil count decreased [Unknown]
  - Lymphocyte count decreased [Unknown]
  - Platelet count increased [Unknown]
  - Chest pain [Unknown]
  - Dyspnoea [Unknown]
  - Neutropenia [Not Recovered/Not Resolved]
  - Chills [Not Recovered/Not Resolved]
  - Headache [Recovered/Resolved]
  - Tachycardia [Unknown]
  - Febrile neutropenia [Recovered/Resolved]
  - Cough [Not Recovered/Not Resolved]

NARRATIVE: CASE EVENT DATE: 20210119
